FAERS Safety Report 24076041 (Version 6)
Quarter: 2024Q4

REPORT INFORMATION
  Report Type: Report from Study
  Country: CO (occurrence: CO)
  Receive Date: 20240710
  Receipt Date: 20241004
  Transmission Date: 20250114
  Serious: Yes (Other)
  Sender: NOVARTIS
  Company Number: CO-002147023-NVSC2023CO230034

PATIENT
  Age: 46 Year
  Sex: Male
  Weight: 86 kg

DRUGS (16)
  1. COSENTYX [Suspect]
     Active Substance: SECUKINUMAB
     Indication: Psoriasis
     Dosage: 300 MG, QMO (WEEK 0, 1, 2, 3, 4 AND 5)
     Route: 058
     Dates: start: 20231007
  2. COSENTYX [Suspect]
     Active Substance: SECUKINUMAB
     Indication: Psoriatic arthropathy
     Dosage: 300 MG, QMO
     Route: 058
     Dates: start: 20231205
  3. COSENTYX [Suspect]
     Active Substance: SECUKINUMAB
     Dosage: 300 MG, QMO
     Route: 058
     Dates: start: 20240106
  4. COSENTYX [Suspect]
     Active Substance: SECUKINUMAB
     Dosage: 300 MG, QMO
     Route: 058
     Dates: start: 20240205
  5. COSENTYX [Suspect]
     Active Substance: SECUKINUMAB
     Dosage: 300 MG, QMO
     Route: 058
     Dates: start: 20240326
  6. COSENTYX [Suspect]
     Active Substance: SECUKINUMAB
     Dosage: 300 MG, QMO
     Route: 058
     Dates: start: 20240426
  7. COSENTYX [Suspect]
     Active Substance: SECUKINUMAB
     Dosage: 300 MG, QMO
     Route: 058
     Dates: start: 20240527
  8. COSENTYX [Suspect]
     Active Substance: SECUKINUMAB
     Dosage: 300 MG, QMO
     Route: 058
  9. COSENTYX [Suspect]
     Active Substance: SECUKINUMAB
     Dosage: 300 MG, QMO
     Route: 058
  10. ETORICOXIB [Concomitant]
     Active Substance: ETORICOXIB
     Indication: Product used for unknown indication
     Dosage: 90 MG, QD EVERY 24 HOURS / AT LUNCH
     Route: 048
  11. CYANOCOBALAMIN [Concomitant]
     Active Substance: CYANOCOBALAMIN
     Indication: Product used for unknown indication
     Dosage: 1 DOSAGE FORM (1MG/1ML)
     Route: 030
  12. VITAMIN C [Concomitant]
     Active Substance: ASCORBIC ACID
     Indication: Product used for unknown indication
     Dosage: 500 MG, Q12H
     Route: 048
  13. CYCLOBENZAPRINE [Concomitant]
     Active Substance: CYCLOBENZAPRINE
     Indication: Product used for unknown indication
     Dosage: 10 MG, Q24H
     Route: 048
  14. ACETAMINOPHEN AND CODEINE [Concomitant]
     Active Substance: ACETAMINOPHEN\CODEINE PHOSPHATE
     Indication: Product used for unknown indication
     Dosage: 1 DOSAGE FORM (325 MG + 30 MG) , Q8H
     Route: 048
  15. ACETAMINOPHEN [Concomitant]
     Active Substance: ACETAMINOPHEN
     Indication: Product used for unknown indication
     Dosage: 1 DOSAGE FORM (500 MG + 65 MG), Q8H
     Route: 048
  16. TOCILIZUMAB [Concomitant]
     Active Substance: TOCILIZUMAB
     Indication: Product used for unknown indication
     Dosage: UNK
     Route: 065

REACTIONS (55)
  - Psoriatic arthropathy [Unknown]
  - Osteomyelitis chronic [Unknown]
  - Pain [Not Recovered/Not Resolved]
  - Drug intolerance [Unknown]
  - Malaise [Not Recovered/Not Resolved]
  - Nephrolithiasis [Unknown]
  - Transaminases increased [Not Recovered/Not Resolved]
  - Hepatic steatosis [Not Recovered/Not Resolved]
  - Renal failure [Not Recovered/Not Resolved]
  - Splenomegaly [Not Recovered/Not Resolved]
  - Vitamin B12 deficiency [Not Recovered/Not Resolved]
  - Red blood cell count increased [Not Recovered/Not Resolved]
  - Obstructive sleep apnoea syndrome [Not Recovered/Not Resolved]
  - Nail pigmentation [Not Recovered/Not Resolved]
  - Psoriasis [Not Recovered/Not Resolved]
  - Skin lesion [Not Recovered/Not Resolved]
  - Skin plaque [Unknown]
  - Eyelid skin dryness [Unknown]
  - Eyelid exfoliation [Unknown]
  - Skin fissures [Unknown]
  - Drug ineffective [Not Recovered/Not Resolved]
  - Malignant neoplasm of spinal cord [Unknown]
  - Spondylitis [Unknown]
  - Transaminases increased [Recovered/Resolved]
  - Haematocrit increased [Recovered/Resolved]
  - Erythema [Unknown]
  - Urticaria [Unknown]
  - Illness [Unknown]
  - Pain in extremity [Unknown]
  - Injection site injury [Unknown]
  - Swelling [Unknown]
  - Eye swelling [Unknown]
  - Pigmentation disorder [Unknown]
  - Blood triglycerides increased [Recovering/Resolving]
  - Red blood cell abnormality [Unknown]
  - Tremor [Unknown]
  - Seborrhoeic dermatitis [Unknown]
  - Alanine aminotransferase increased [Unknown]
  - C-reactive protein increased [Unknown]
  - Haemoglobin increased [Unknown]
  - Mean platelet volume increased [Unknown]
  - Cough [Unknown]
  - Pyrexia [Unknown]
  - Back pain [Unknown]
  - Spinal pain [Unknown]
  - Depressed mood [Unknown]
  - Ocular hyperaemia [Unknown]
  - Insomnia [Unknown]
  - Anxiety [Unknown]
  - Arthralgia [Unknown]
  - Full blood count abnormal [Unknown]
  - Blood creatinine increased [Unknown]
  - Peripheral swelling [Unknown]
  - General physical health deterioration [Unknown]
  - Osteoporosis [Unknown]

NARRATIVE: CASE EVENT DATE: 20240201
